FAERS Safety Report 9538916 (Version 1)
Quarter: 2013Q3

REPORT INFORMATION
  Report Type: Spontaneous
  Country: FR (occurrence: FR)
  Receive Date: 20130920
  Receipt Date: 20130920
  Transmission Date: 20140515
  Serious: Yes (Hospitalization)
  Sender: FDA-Public Use
  Company Number: FR-JNJFOC-20130906689

PATIENT
  Age: 89 Year
  Sex: Male

DRUGS (7)
  1. RISPERDAL [Suspect]
     Indication: ABNORMAL BEHAVIOUR
     Route: 048
     Dates: start: 20130410, end: 20130518
  2. DOLIPRANE [Suspect]
     Indication: ARTHRALGIA
     Route: 048
     Dates: start: 20130506, end: 20130513
  3. PRAVASTATIN SODIUM [Suspect]
     Indication: HYPERCHOLESTEROLAEMIA
     Route: 048
     Dates: start: 20120809, end: 20130518
  4. BACLOFEN [Concomitant]
     Indication: JOINT CONTRACTURE
     Route: 048
  5. BACLOFEN [Concomitant]
     Indication: JOINT CONTRACTURE
     Route: 048
     Dates: end: 20130506
  6. SERESTA [Concomitant]
     Route: 065
  7. FORLAX [Concomitant]
     Route: 065

REACTIONS (2)
  - Hepatitis cholestatic [Recovering/Resolving]
  - Malnutrition [Unknown]
